FAERS Safety Report 10096215 (Version 1)
Quarter: 2014Q2

REPORT INFORMATION
  Report Type: Spontaneous
  Country: US (occurrence: None)
  Receive Date: 20140410
  Receipt Date: 20140410
  Transmission Date: 20141212
  Serious: Yes (Hospitalization)
  Sender: FDA-Public Use
  Company Number: 2013-332

PATIENT
  Age: 25 Year
  Sex: Male

DRUGS (4)
  1. FAZACLO (CLOZAPINE, USP) ODT (ORAL DISINTEGRATING TABLET) [Suspect]
     Route: 048
     Dates: start: 20130531, end: 20130608
  2. AUGMENTIN (AMOXICILLIN TRIHYDRATE, CLAVULANATE POTASSIUM) [Concomitant]
  3. INDERAL (PROPRANOLOL HYDROCHLORIDE) [Concomitant]
  4. MILK OF MAGNESIA (MAGNESIUM HYDROXIDE) [Concomitant]

REACTIONS (1)
  - Infection [None]
